FAERS Safety Report 4589800-5 (Version None)
Quarter: 2005Q1

REPORT INFORMATION
  Report Type: 
  Country: None (occurrence: None)
  Receive Date: 20050223
  Receipt Date: 20050210
  Transmission Date: 20050727
  Serious: Yes (Death)
  Sender: FDA-Public Use
  Company Number: FR-GLAXOSMITHKLINE-B0370998A

PATIENT
  Age: 55 Year
  Sex: Male

DRUGS (5)
  1. TRIZIVIR [Suspect]
     Indication: ACQUIRED IMMUNODEFICIENCY SYNDROME
     Route: 048
     Dates: start: 20041109, end: 20041224
  2. VIREAD [Suspect]
     Indication: ACQUIRED IMMUNODEFICIENCY SYNDROME
     Route: 048
     Dates: start: 20041109, end: 20041224
  3. ENFUVIRTIDE [Suspect]
     Indication: ACQUIRED IMMUNODEFICIENCY SYNDROME
     Route: 058
     Dates: start: 20041109, end: 20041224
  4. VALGANCICLOVIR HYDROCHLORIDE [Suspect]
     Indication: CYTOMEGALOVIRUS INFECTION
     Dosage: 1800MG PER DAY
     Route: 048
     Dates: start: 20041019, end: 20041224
  5. TIPRANAVIR [Suspect]
     Indication: ACQUIRED IMMUNODEFICIENCY SYNDROME
     Route: 048
     Dates: start: 20041109, end: 20041224

REACTIONS (1)
  - LUNG DISORDER [None]
